FAERS Safety Report 16870349 (Version 1)
Quarter: 2019Q3

REPORT INFORMATION
  Report Type: Spontaneous
  Country: PT (occurrence: PT)
  Receive Date: 20190930
  Receipt Date: 20190930
  Transmission Date: 20191005
  Serious: Yes (Hospitalization, Other)
  Sender: FDA-Public Use
  Company Number: PHHY2018PT022617

PATIENT

DRUGS (5)
  1. PARACETAMOL [Suspect]
     Active Substance: ACETAMINOPHEN
     Indication: OROPHARYNGEAL PAIN
     Dosage: UNK
     Route: 065
  2. PARACETAMOL [Suspect]
     Active Substance: ACETAMINOPHEN
     Indication: RHINORRHOEA
  3. IRON [Concomitant]
     Active Substance: IRON
     Indication: IRON DEFICIENCY ANAEMIA
     Dosage: UNK
     Route: 065
  4. NIMESULIDE [Suspect]
     Active Substance: NIMESULIDE
     Indication: OROPHARYNGEAL PAIN
     Dosage: UNK
     Route: 065
  5. NIMESULIDE [Suspect]
     Active Substance: NIMESULIDE
     Indication: RHINORRHOEA

REACTIONS (13)
  - Pyrexia [Unknown]
  - Lymphopenia [Unknown]
  - Off label use [Recovered/Resolved with Sequelae]
  - Stevens-Johnson syndrome [Recovered/Resolved with Sequelae]
  - Rash erythematous [Unknown]
  - Pancreatitis acute [Recovered/Resolved]
  - Overlap syndrome [Recovered/Resolved]
  - Skin erosion [Unknown]
  - Rash [Unknown]
  - Eyelid oedema [Unknown]
  - Obliterative bronchiolitis [Recovered/Resolved]
  - Conjunctivitis [Unknown]
  - Toxic epidermal necrolysis [Recovered/Resolved with Sequelae]
